FAERS Safety Report 24395709 (Version 1)
Quarter: 2024Q4

REPORT INFORMATION
  Report Type: Spontaneous
  Country: GB (occurrence: GB)
  Receive Date: 20241004
  Receipt Date: 20241004
  Transmission Date: 20250115
  Serious: Yes (Other)
  Sender: AUROBINDO
  Company Number: GB-AUROBINDO-AUR-APL-2024-047186

PATIENT
  Sex: Female

DRUGS (12)
  1. AMISULPRIDE [Suspect]
     Active Substance: AMISULPRIDE
     Indication: Schizoaffective disorder
     Dosage: UNK
     Route: 065
  2. ARIPIPRAZOLE [Suspect]
     Active Substance: ARIPIPRAZOLE
     Indication: Schizoaffective disorder
     Dosage: UNK
     Route: 065
  3. OLANZAPINE [Suspect]
     Active Substance: OLANZAPINE
     Indication: Schizoaffective disorder
     Dosage: UNK
     Route: 065
  4. CLOZAPINE [Concomitant]
     Active Substance: CLOZAPINE
     Indication: Schizoaffective disorder
     Dosage: RE-TITRATED
     Route: 065
  5. CLOZAPINE [Concomitant]
     Active Substance: CLOZAPINE
     Dosage: 6.25 MILLIGRAM (ON DAY 1)
     Route: 030
  6. CLOZAPINE [Concomitant]
     Active Substance: CLOZAPINE
     Dosage: 12.5 MILLIGRAM (ON DAY 3)
     Route: 030
  7. CLOZAPINE [Concomitant]
     Active Substance: CLOZAPINE
     Dosage: 25 MILLIGRAM  (ON DAY 4)
     Route: 030
  8. CLOZAPINE [Concomitant]
     Active Substance: CLOZAPINE
     Dosage: 37.5 MILLIGRAM  (ON DAY 7)
     Route: 030
  9. CLOZAPINE [Concomitant]
     Active Substance: CLOZAPINE
     Dosage: 50 MILLIGRAM (ON DAY 8, 9, 10, 13, 14)
     Route: 030
  10. CLOZAPINE [Concomitant]
     Active Substance: CLOZAPINE
     Dosage: 75 MILLIGRAM (ON DAY 16)
     Route: 030
  11. LITHIUM [Concomitant]
     Active Substance: LITHIUM
     Indication: Schizoaffective disorder
     Dosage: UNK
     Route: 065
  12. LORAZEPAM [Concomitant]
     Active Substance: LORAZEPAM
     Indication: Schizoaffective disorder
     Dosage: UNK
     Route: 065

REACTIONS (4)
  - Hallucination, auditory [Unknown]
  - Treatment failure [Unknown]
  - Catatonia [Unknown]
  - Paranoia [Unknown]
